FAERS Safety Report 10088422 (Version 1)
Quarter: 2014Q2

REPORT INFORMATION
  Report Type: Spontaneous
  Country: US (occurrence: US)
  Receive Date: 20140421
  Receipt Date: 20140421
  Transmission Date: 20141212
  Serious: No
  Sender: FDA-Public Use
  Company Number: US-BIOGENIDEC-2014BI031464

PATIENT
  Age: 61 Year
  Sex: Female
  Weight: 124 kg

DRUGS (20)
  1. TECFIDERA [Suspect]
     Indication: MULTIPLE SCLEROSIS
     Route: 048
     Dates: start: 20140328
  2. CALCIUM 500 TAB + D [Concomitant]
  3. STOOL SOFTEN CAP 100-30 [Concomitant]
  4. NOVOLG INJ 100/ML [Concomitant]
  5. VITAMIN B12 [Concomitant]
  6. FOLIC ACID [Concomitant]
  7. IRON [Concomitant]
  8. GLUCOPHAGE [Concomitant]
  9. VICODIN [Concomitant]
  10. ASA LOW DOSE [Concomitant]
  11. AMPYRA [Concomitant]
  12. CLONAZEPAM [Concomitant]
  13. LORTAB 5 [Concomitant]
  14. TRICOR [Concomitant]
  15. SIMVASTATIN [Concomitant]
  16. VESICARE [Concomitant]
  17. ZOLOFT [Concomitant]
  18. ALTACE [Concomitant]
  19. MAXZIDE-25 [Concomitant]
  20. LOVAZA [Concomitant]

REACTIONS (8)
  - Face oedema [Recovered/Resolved]
  - Fatigue [Not Recovered/Not Resolved]
  - Swelling face [Unknown]
  - Urinary tract infection [Unknown]
  - Chills [Unknown]
  - Flushing [Recovered/Resolved]
  - Nausea [Not Recovered/Not Resolved]
  - Erythema [Unknown]
